FAERS Safety Report 9892902 (Version 2)
Quarter: 2014Q2

REPORT INFORMATION
  Report Type: Report from Study
  Country: SI (occurrence: SI)
  Receive Date: 20140213
  Receipt Date: 20140515
  Transmission Date: 20141212
  Serious: Yes (Hospitalization)
  Sender: FDA-Public Use
  Company Number: SI-BIOGENIDEC-2014BI011153

PATIENT
  Age: 35 Year
  Sex: Female

DRUGS (2)
  1. AVONEX [Suspect]
     Indication: CLINICALLY ISOLATED SYNDROME
     Route: 030
     Dates: start: 20130215, end: 20131220
  2. IBUPROFEN [Concomitant]

REACTIONS (1)
  - Rhabdomyolysis [Recovered/Resolved]
